FAERS Safety Report 6490439-5 (Version None)
Quarter: 2009Q4

REPORT INFORMATION
  Report Type: 
  Country: None (occurrence: None)
  Receive Date: 20091208
  Receipt Date: 20091123
  Transmission Date: 20100525
  Serious: Yes (Hospitalization, Other)
  Sender: FDA-Public Use
  Company Number: 230551M09USA

PATIENT
  Age: 41 Year
  Sex: Male

DRUGS (4)
  1. REBIF [Suspect]
     Indication: MULTIPLE SCLEROSIS
     Dosage: 44 MCG, 3 IN 1 WEEKS, SUBCUTANEOUS
     Route: 058
     Dates: start: 20061127, end: 20090601
  2. NORVASC [Concomitant]
  3. OTHER ANTIHYPERTENSIVE (ANTIHYPERTENSIVES) [Concomitant]
  4. TYLENOL [Concomitant]

REACTIONS (3)
  - DECUBITUS ULCER [None]
  - FULL BLOOD COUNT DECREASED [None]
  - INFECTION [None]
